FAERS Safety Report 6278036-8 (Version None)
Quarter: 2009Q3

REPORT INFORMATION
  Report Type: 
  Country: None (occurrence: None)
  Receive Date: 20090722
  Receipt Date: 20090710
  Transmission Date: 20100115
  Serious: Yes (Other)
  Sender: FDA-Public Use
  Company Number: PHHY2009MX28635

PATIENT
  Sex: Female

DRUGS (3)
  1. EXFORGE [Suspect]
     Indication: HYPERTENSION
     Dosage: 1 TABLET/DAY
     Route: 048
  2. RIVOTRIL [Concomitant]
  3. PROGESTOGENS AND ESTROGENS IN COMBINATION [Concomitant]

REACTIONS (4)
  - ANXIETY [None]
  - OBSESSIVE THOUGHTS [None]
  - PANIC REACTION [None]
  - TACHYCARDIA [None]
